FAERS Safety Report 24948602 (Version 2)
Quarter: 2025Q1

REPORT INFORMATION
  Report Type: Report from Study
  Country: MX (occurrence: MX)
  Receive Date: 20250210
  Receipt Date: 20250307
  Transmission Date: 20250409
  Serious: Yes (Hospitalization)
  Sender: TAKEDA
  Company Number: MX-TAKEDA-2025TUS013323

PATIENT
  Age: 54 Year
  Sex: Female
  Weight: 56 kg

DRUGS (1)
  1. PONATINIB [Suspect]
     Active Substance: PONATINIB
     Indication: Chronic myeloid leukaemia
     Dosage: 45 MILLIGRAM, QD
     Dates: start: 20241220, end: 20250224

REACTIONS (2)
  - Splenomegaly [Recovering/Resolving]
  - Haemoglobin abnormal [Unknown]

NARRATIVE: CASE EVENT DATE: 20250127
